FAERS Safety Report 6567248-1 (Version None)
Quarter: 2010Q1

REPORT INFORMATION
  Report Type: 
  Country: None (occurrence: None)
  Receive Date: 20100202
  Receipt Date: 20100126
  Transmission Date: 20100710
  Serious: Yes (Hospitalization, Other)
  Sender: FDA-Public Use
  Company Number: BR-ABBOTT-09P-020-0570567-00

PATIENT
  Sex: Male
  Weight: 97 kg

DRUGS (3)
  1. HUMIRA [Suspect]
     Indication: RHEUMATOID ARTHRITIS
     Route: 058
     Dates: end: 20090301
  2. OMEPRAZOLE [Concomitant]
     Indication: PROPHYLAXIS AGAINST GASTROINTESTINAL ULCER
  3. NIMESULIDE [Concomitant]
     Indication: RHEUMATOID ARTHRITIS

REACTIONS (5)
  - BONE EROSION [None]
  - DEPRESSION [None]
  - INCISION SITE INFECTION [None]
  - PROCEDURAL PAIN [None]
  - THYROID DISORDER [None]
